FAERS Safety Report 24642066 (Version 2)
Quarter: 2024Q4

REPORT INFORMATION
  Report Type: Spontaneous
  Country: US (occurrence: US)
  Receive Date: 20241120
  Receipt Date: 20241128
  Transmission Date: 20250115
  Serious: Yes (Life-Threatening)
  Sender: PFIZER
  Company Number: US-PFIZER INC-202400302976

PATIENT
  Age: 62 Year
  Sex: Male

DRUGS (3)
  1. ERYTHROMYCIN [Interacting]
     Active Substance: ERYTHROMYCIN
     Indication: Osteomyelitis
     Dosage: 500 MG, 4X/DAY
  2. TACROLIMUS [Interacting]
     Active Substance: TACROLIMUS
     Indication: Osteomyelitis
     Dosage: UNK
  3. DOXYCYCLINE [Concomitant]
     Active Substance: DOXYCYCLINE
     Indication: Osteomyelitis
     Dosage: 100 MG, 2X/DAY

REACTIONS (4)
  - Drug interaction [Unknown]
  - Acute kidney injury [Unknown]
  - Crystal nephropathy [Unknown]
  - Diarrhoea [Unknown]
